FAERS Safety Report 8491798-4 (Version None)
Quarter: 2012Q3

REPORT INFORMATION
  Report Type: 
  Country: None (occurrence: None)
  Receive Date: 20120706
  Receipt Date: 20120627
  Transmission Date: 20120928
  Serious: Yes (Other)
  Sender: FDA-Public Use
  Company Number: US-SANOFI-AVENTIS-2012SA046763

PATIENT
  Age: 76 Year
  Sex: Male

DRUGS (3)
  1. PLAVIX [Suspect]
  2. LOVENOX [Suspect]
     Dates: start: 20120501
  3. ASPIRIN [Suspect]

REACTIONS (3)
  - IMMOBILE [None]
  - CONTUSION [None]
  - SURGERY [None]
